FAERS Safety Report 7233768-X (Version None)
Quarter: 2011Q1

REPORT INFORMATION
  Report Type: 
  Country: None (occurrence: None)
  Receive Date: 20110119
  Receipt Date: 20110110
  Transmission Date: 20110831
  Serious: Yes (Hospitalization)
  Sender: FDA-Public Use
  Company Number: NL-MEDIMMUNE-MEDI-0012177

PATIENT
  Sex: Female
  Weight: 8.86 kg

DRUGS (2)
  1. SYNAGIS [Suspect]
     Route: 030
     Dates: start: 20110107, end: 20110107
  2. SYNAGIS [Suspect]
     Route: 030
     Dates: start: 20101014, end: 20101209

REACTIONS (4)
  - INFANTILE SPITTING UP [None]
  - PALLOR [None]
  - BLOOD GLUCOSE DECREASED [None]
  - MENTAL IMPAIRMENT [None]
